FAERS Safety Report 21368466 (Version 3)
Quarter: 2022Q4

REPORT INFORMATION
  Report Type: Spontaneous
  Country: JP (occurrence: JP)
  Receive Date: 20220923
  Receipt Date: 20221010
  Transmission Date: 20230112
  Serious: Yes (Other)
  Sender: FDA-Public Use
  Company Number: JP-CHUGAI-2022035567

PATIENT
  Age: 63 Year
  Sex: Female

DRUGS (2)
  1. ACTEMRA [Suspect]
     Active Substance: TOCILIZUMAB
     Indication: Rheumatoid arthritis
     Dosage: 8 MILLIGRAM, ONCE/4WEEKS
     Route: 041
     Dates: start: 20100601
  2. METHOTREXATE [Suspect]
     Active Substance: METHOTREXATE
     Indication: Rheumatoid arthritis
     Route: 065

REACTIONS (7)
  - Intervertebral disc disorder [Unknown]
  - Lumbar spinal stenosis [Unknown]
  - Osteoarthritis [Unknown]
  - Foot deformity [Unknown]
  - Joint arthroplasty [Unknown]
  - Matrix metalloproteinase-3 increased [Unknown]
  - White blood cell count decreased [Recovered/Resolved]

NARRATIVE: CASE EVENT DATE: 20210101
